FAERS Safety Report 5316290-7 (Version None)
Quarter: 2007Q2

REPORT INFORMATION
  Report Type: 
  Country: None (occurrence: None)
  Receive Date: 20070427
  Receipt Date: 20070417
  Transmission Date: 20071010
  Serious: Yes (Hospitalization)
  Sender: FDA-Public Use
  Company Number: 2006-02718

PATIENT
  Age: 66 Year
  Sex: Male
  Weight: 77.8 kg

DRUGS (17)
  1. VELCADE [Suspect]
     Indication: MULTIPLE MYELOMA
     Dosage: 1.30 MG/M2, IV BOLUS
     Route: 040
     Dates: start: 20060508, end: 20060609
  2. DEXAMETHASONE TAB [Suspect]
     Indication: MULTIPLE MYELOMA
     Dosage: 40.00 MG
     Dates: start: 20060508, end: 20060606
  3. THALIDOMIDE [Suspect]
     Indication: MULTIPLE MYELOMA
     Dosage: 100.00 MG, ORAL
     Route: 048
     Dates: start: 20060501, end: 20060627
  4. VITAMIN B12 [Concomitant]
  5. FERROUS SULFATE TAB [Concomitant]
  6. TRAVOPROST (TRAVOPROST) DROP [Concomitant]
  7. TIMOLOL (TIMOLOL) DROP [Concomitant]
  8. SODIUM CHLORIDE (SODIUM CHLORIDE) OINTMENT, CREAM [Concomitant]
  9. CITALOPRAM HYDROBROMIDE [Concomitant]
  10. METOPROLOL TARTRATE [Concomitant]
  11. RANITIDINE [Concomitant]
  12. FELODIPINE [Concomitant]
  13. LORATADINE [Concomitant]
  14. HYDROCODONE W/ACETAMINOPHEN (PARACETAMOL, HYDROCODONE BITARTRATE) [Concomitant]
  15. MULTIVITAMINS (ERGOCALCIFEROL, PANTHENOL, NICOTINAMIDE, RIBOFLAVIN, TH [Concomitant]
  16. DIPHENHYDRAMINE HCL [Concomitant]
  17. ENOXAPARIN SODIUM [Concomitant]

REACTIONS (14)
  - ABDOMINAL BRUIT [None]
  - ACTIVITIES OF DAILY LIVING IMPAIRED [None]
  - BACK PAIN [None]
  - CHEST PAIN [None]
  - GAIT DISTURBANCE [None]
  - INTERVERTEBRAL DISC DEGENERATION [None]
  - INTERVERTEBRAL DISC PROTRUSION [None]
  - MOBILITY DECREASED [None]
  - NEUROPATHY PERIPHERAL [None]
  - PAIN IN EXTREMITY [None]
  - PULSE ABSENT [None]
  - SPINAL COMPRESSION FRACTURE [None]
  - SPINAL CORD COMPRESSION [None]
  - SPINAL OSTEOARTHRITIS [None]
